FAERS Safety Report 8432430-5 (Version None)
Quarter: 2012Q2

REPORT INFORMATION
  Report Type: 
  Country: None (occurrence: None)
  Receive Date: 20120613
  Receipt Date: 20120530
  Transmission Date: 20120825
  Serious: Yes (Hospitalization)
  Sender: FDA-Public Use
  Company Number: DE-ELI_LILLY_AND_COMPANY-DE201105005033

PATIENT
  Sex: Female
  Weight: 75 kg

DRUGS (9)
  1. ACETAMINOPHEN [Concomitant]
     Dosage: UNK, AS NEEDED
  2. SIMVASTATIN [Concomitant]
     Dosage: 20 MG, QD
  3. GEMCITABINE HYDROCHLORIDE [Suspect]
     Indication: BREAST CANCER
     Dosage: 1170 MG, UNKNOWN
     Route: 042
     Dates: end: 20110514
  4. OMEPRAZOLE [Concomitant]
     Dosage: 20 MG, UNK
     Route: 048
  5. RAMIPRIL [Concomitant]
     Dosage: 12.2 DF, QD
  6. DOCETAXEL [Suspect]
     Indication: BREAST CANCER
     Dosage: 132.75 MG, UNKNOWN
     Route: 042
  7. OMEPRAZOLE [Concomitant]
     Indication: GASTRITIS
     Dosage: 40 MG, QD
     Route: 048
  8. METOCLOPRAMIDE [Concomitant]
     Dosage: UNK, ON DEMAND
  9. RAMIPRIL [Concomitant]
     Dosage: 2.5 DF, QD

REACTIONS (2)
  - HYPERTENSIVE CRISIS [None]
  - GASTROINTESTINAL PAIN [None]
